FAERS Safety Report 11360375 (Version 1)
Quarter: 2015Q3

REPORT INFORMATION
  Report Type: Report from Study
  Country: US (occurrence: US)
  Receive Date: 20150810
  Receipt Date: 20150810
  Transmission Date: 20151125
  Serious: No
  Sender: FDA-Public Use
  Company Number: PHEH2014US022231

PATIENT
  Age: 44 Year
  Sex: Female

DRUGS (4)
  1. EXTAVIA [Suspect]
     Active Substance: INTERFERON BETA-1B
     Indication: MULTIPLE SCLEROSIS
     Dosage: WEEKS 1-2, 0.062 MG, (0.25 ML) QOD
     Route: 058
     Dates: start: 20141102
  2. EXTAVIA [Suspect]
     Active Substance: INTERFERON BETA-1B
     Dosage: WEEKS 3-4, 0.125 MG, (0.5 ML) QOD
     Route: 058
  3. EXTAVIA [Suspect]
     Active Substance: INTERFERON BETA-1B
     Dosage: WEEK 5-6, 0.187 MG, (0.75 ML) QOD
     Route: 058
  4. EXTAVIA [Suspect]
     Active Substance: INTERFERON BETA-1B
     Dosage: WEEK 7, 0.25 MG, (1 ML) QOD
     Route: 058

REACTIONS (7)
  - Injection site bruising [Recovering/Resolving]
  - Ocular discomfort [Recovered/Resolved]
  - Feeling abnormal [Unknown]
  - Musculoskeletal stiffness [Recovering/Resolving]
  - Headache [Recovered/Resolved]
  - Injection site haemorrhage [Recovered/Resolved]
  - Influenza like illness [Recovered/Resolved]

NARRATIVE: CASE EVENT DATE: 20141102
